FAERS Safety Report 9522290 (Version 2)
Quarter: 2014Q4

REPORT INFORMATION
  Report Type: Spontaneous
  Country: US (occurrence: US)
  Receive Date: 20130913
  Receipt Date: 20141209
  Transmission Date: 20150529
  Serious: Yes (Hospitalization)
  Sender: FDA-Public Use
  Company Number: US-BAYER-2013-110487

PATIENT
  Age: 28 Year
  Sex: Female
  Weight: 75 kg

DRUGS (4)
  1. MIRENA [Suspect]
     Active Substance: LEVONORGESTREL
     Indication: MENORRHAGIA
     Dosage: 20 MCG/24HR, CONT
     Route: 015
     Dates: start: 20061010, end: 201008
  2. CLARITIN [Concomitant]
     Active Substance: LORATADINE
  3. MIRENA [Suspect]
     Active Substance: LEVONORGESTREL
     Indication: CONTRACEPTION
     Dosage: 20 MCG/24HR, CONT
     Route: 015
     Dates: start: 20050502, end: 20100713
  4. PSEUDOEPHEDRINE [Concomitant]
     Active Substance: PSEUDOEPHEDRINE

REACTIONS (11)
  - Procedural pain [None]
  - Medical device pain [None]
  - Emotional distress [None]
  - Device use error [None]
  - Pain [None]
  - Medical device discomfort [None]
  - Uterine perforation [None]
  - Injury [None]
  - Depression [None]
  - Device failure [None]
  - Scar [None]

NARRATIVE: CASE EVENT DATE: 20061010
